FAERS Safety Report 8969139 (Version 2)
Quarter: 2013Q1

REPORT INFORMATION
  Report Type: Spontaneous
  Country: JP (occurrence: None)
  Receive Date: 20121207
  Receipt Date: 20130110
  Transmission Date: 20140127
  Serious: Yes (Hospitalization)
  Sender: FDA-Public Use
  Company Number: 2012MPI00545

PATIENT
  Age: 43 Year
  Sex: Female

DRUGS (1)
  1. BRENTUXIMAB VEDOTIN [Suspect]
     Indication: HODGKIN^S DISEASE
     Dosage: UNK, Q21D, IV DRIP
     Route: 041
     Dates: start: 20120117, end: 20121116

REACTIONS (3)
  - Hodgkin^s disease [None]
  - Disease recurrence [None]
  - Pleural effusion [None]
